FAERS Safety Report 4716031-8 (Version None)
Quarter: 2005Q3

REPORT INFORMATION
  Report Type: 
  Country: None (occurrence: None)
  Receive Date: 20050718
  Receipt Date: 20050707
  Transmission Date: 20060218
  Serious: Yes (Hospitalization, Other)
  Sender: FDA-Public Use
  Company Number: 200516216GDDC

PATIENT
  Age: 79 Year
  Sex: Male

DRUGS (11)
  1. RIFAMPICIN [Suspect]
     Indication: STAPHYLOCOCCAL INFECTION
     Dosage: DOSE: UNK
     Dates: start: 20041001
  2. ANANDRON [Suspect]
     Dosage: DOSE: UNK
  3. VANCOMYCIN [Concomitant]
  4. FUCIDINE CAP [Concomitant]
  5. LIPITOR [Concomitant]
  6. SOLPRIN [Concomitant]
  7. NORVASC [Concomitant]
  8. GOPTEN [Concomitant]
  9. NEXIUM [Concomitant]
  10. FERROGRADUMET [Concomitant]
  11. FYBOGEL [Concomitant]

REACTIONS (1)
  - PULMONARY FIBROSIS [None]
